FAERS Safety Report 5970841-8 (Version None)
Quarter: 2008Q4

REPORT INFORMATION
  Report Type: 
  Country: None (occurrence: None)
  Receive Date: 20081127
  Receipt Date: 20081117
  Transmission Date: 20090506
  Serious: No
  Sender: FDA-Public Use
  Company Number: US-JNJFOC-20081104316

PATIENT
  Sex: Male
  Weight: 74.39 kg

DRUGS (4)
  1. FENTANYL TRANSDERMAL SYSTEM [Suspect]
     Indication: PANCREATITIS CHRONIC
     Route: 062
  2. PERCOCET [Concomitant]
     Indication: PAIN
     Dosage: 10-335 MG/TABLET/10-325 MG/ONE AS NEEDED
     Route: 048
  3. PRILOSEC [Concomitant]
     Indication: DYSPEPSIA
     Route: 048
  4. VIOKASE [Concomitant]
     Indication: DYSPEPSIA
     Dosage: DOSE UNSPECIFIED, TABLETS WITH EACH MEAL
     Route: 048

REACTIONS (7)
  - ANOREXIA [None]
  - DRUG ADMINISTERED AT INAPPROPRIATE SITE [None]
  - DRUG DOSE OMISSION [None]
  - FALL [None]
  - PAIN [None]
  - THINKING ABNORMAL [None]
  - WRONG TECHNIQUE IN DRUG USAGE PROCESS [None]
